FAERS Safety Report 24813036 (Version 3)
Quarter: 2025Q2

REPORT INFORMATION
  Report Type: Spontaneous
  Country: US (occurrence: US)
  Receive Date: 20250107
  Receipt Date: 20250422
  Transmission Date: 20250716
  Serious: Yes (Hospitalization, Other)
  Sender: BRISTOL-MYERS SQUIBB COMPANY
  Company Number: US-BRISTOL-MYERS SQUIBB COMPANY-2024-201637

PATIENT
  Age: 64 Year
  Sex: Male

DRUGS (4)
  1. IPILIMUMAB [Suspect]
     Active Substance: IPILIMUMAB
     Indication: Metastatic renal cell carcinoma
  2. NIVOLUMAB [Suspect]
     Active Substance: NIVOLUMAB
     Indication: Metastatic renal cell carcinoma
  3. CABOZANTINIB [Concomitant]
     Active Substance: CABOZANTINIB
     Indication: Metastatic renal cell carcinoma
  4. CABOZANTINIB [Concomitant]
     Active Substance: CABOZANTINIB

REACTIONS (3)
  - Immune-mediated enterocolitis [Recovered/Resolved]
  - Rectal ulcer [Unknown]
  - Anal fistula [Recovered/Resolved]
